FAERS Safety Report 4450957-8 (Version None)
Quarter: 2004Q3

REPORT INFORMATION
  Report Type: 
  Country: None (occurrence: None)
  Receive Date: 20040916
  Receipt Date: 20040205
  Transmission Date: 20050211
  Serious: Yes (Other)
  Sender: FDA-Public Use
  Company Number: US-BRISTOL-MYERS SQUIBB COMPANY-12498879

PATIENT
  Age: 53 Year
  Sex: Female

DRUGS (8)
  1. STADOL [Suspect]
     Route: 045
     Dates: start: 19960920, end: 19990701
  2. STADOL [Suspect]
     Dosage: DURATION: MORE THAN SIX MONTHS TO THREE EARS
     Route: 030
  3. PROPOXYPHENE NAPSYLATE [Concomitant]
  4. VERAPAMIL [Concomitant]
  5. IBUPROFEN [Concomitant]
  6. HYDROCODONE + ACETAMINOPHEN [Concomitant]
  7. PROMETHAZINE [Concomitant]
  8. ULTRAM [Concomitant]

REACTIONS (2)
  - DEPENDENCE [None]
  - DRUG WITHDRAWAL SYNDROME [None]
